FAERS Safety Report 4627805-6 (Version None)
Quarter: 2005Q2

REPORT INFORMATION
  Report Type: 
  Country: None (occurrence: None)
  Receive Date: 20050404
  Receipt Date: 20050404
  Transmission Date: 20051028
  Serious: No
  Sender: FDA-Public Use
  Company Number: None

PATIENT
  Age: 29 Year
  Sex: Female
  Weight: 72.5755 kg

DRUGS (1)
  1. TUBERSOL [Suspect]
     Dosage: 5 US INTRADERMAL
     Route: 023
     Dates: start: 20050321

REACTIONS (4)
  - CHEST X-RAY ABNORMAL [None]
  - INJECTION SITE ERYTHEMA [None]
  - INJECTION SITE RASH [None]
  - RASH MACULO-PAPULAR [None]
